FAERS Safety Report 13987462 (Version 1)
Quarter: 2017Q3

REPORT INFORMATION
  Report Type: Spontaneous
  Country: MX (occurrence: MX)
  Receive Date: 20170919
  Receipt Date: 20170919
  Transmission Date: 20171128
  Serious: Yes (Other)
  Sender: FDA-Public Use
  Company Number: MX-PFIZER INC-2017397104

PATIENT
  Age: 71 Year
  Sex: Male

DRUGS (1)
  1. VIAGRA [Suspect]
     Active Substance: SILDENAFIL CITRATE
     Indication: ERECTILE DYSFUNCTION
     Dosage: 1/3 OF VIAGRA 100MG,UNK

REACTIONS (5)
  - Asphyxia [Unknown]
  - Burning sensation [Unknown]
  - Confusional state [Unknown]
  - Hypertension [Unknown]
  - Somnolence [Unknown]
